FAERS Safety Report 17163247 (Version 1)
Quarter: 2019Q4

REPORT INFORMATION
  Report Type: Spontaneous
  Country: DE (occurrence: DE)
  Receive Date: 20191217
  Receipt Date: 20191217
  Transmission Date: 20200122
  Serious: Yes (Hospitalization)
  Sender: FDA-Public Use
  Company Number: DE-ACCORD-165731

PATIENT
  Age: 18 Year
  Sex: Male
  Weight: 69 kg

DRUGS (11)
  1. CYTARABINE/CYTARABINE HYDROCHLORIDE/CYTARABINE OCFOSFATE [Suspect]
     Active Substance: CYTARABINE
     Indication: PRODUCT USED FOR UNKNOWN INDICATION
     Dosage: 4 G / M2, ACCORDING TO SCHEME, MOST RECENTLY ON 27/06/2018, INJECTION / INFUSION
     Route: 042
  2. ETOPOSIDE. [Suspect]
     Active Substance: ETOPOSIDE
     Indication: PRODUCT USED FOR UNKNOWN INDICATION
     Dosage: 250 MG / M2, ACCORDING TO SCHEME, MOST RECENTLY ON 27/06/2018,?INJECTION / INFUSION
     Route: 042
  3. VINDESINE/VINDESINE SULFATE [Suspect]
     Active Substance: VINDESINE
     Indication: PRODUCT USED FOR UNKNOWN INDICATION
     Dosage: 3 MG / M2, ACCORDING TO SCHEME, MOST RECENTLY ON 27/06/2018, INJECTION / INFUSION
     Route: 042
  4. COTRIMOXAZOLE FORTE AL [Concomitant]
     Dosage: 960 MG, MO, MI, FR,
     Route: 048
  5. DEXAMETHASONE. [Concomitant]
     Active Substance: DEXAMETHASONE
     Dosage: 10 MG / M2, ACCORDING TO SCHEME, MOST RECENTLY ON 27/06/2018, INJECTION / INFUSION
     Route: 042
  6. METHOTREXATE. [Suspect]
     Active Substance: METHOTREXATE
     Indication: PRODUCT USED FOR UNKNOWN INDICATION
     Dosage: 1.5 G / M2, ACCORDING TO SCHEME, MOST RECENTLY ON 27/06/2018, INJECTION / INFUSION
     Route: 042
  7. CIPROFLOXACIN. [Concomitant]
     Active Substance: CIPROFLOXACIN
     Dosage: 500 MG, 1-0-1-0,
     Route: 048
  8. FLUCONAZOLE. [Concomitant]
     Active Substance: FLUCONAZOLE
     Dosage: 100 MG, 1-0-0-0,
     Route: 048
  9. FILGRASTIM HEXAL [Concomitant]
     Active Substance: FILGRASTIM
     Dosage: 48000000 IE, 1-0-0-0, INJECTION / INFUSION, 48 MIO.E./0,5ML
     Route: 042
  10. ACICLOVIR [Concomitant]
     Active Substance: ACYCLOVIR
     Dosage: 400 MG, 1-1-1-0,
     Route: 048
  11. PANTOPRAZOLE [Concomitant]
     Active Substance: PANTOPRAZOLE
     Dosage: 40 MG, 1-0-0-0,
     Route: 048

REACTIONS (3)
  - Localised infection [Unknown]
  - Stomatitis [Unknown]
  - Pyrexia [Unknown]
